FAERS Safety Report 6129557-X (Version None)
Quarter: 2009Q1

REPORT INFORMATION
  Report Type: 
  Country: None (occurrence: None)
  Receive Date: 20090324
  Receipt Date: 20090311
  Transmission Date: 20090719
  Serious: Yes (Hospitalization)
  Sender: FDA-Public Use
  Company Number: US-AMGEN-US338234

PATIENT
  Weight: 3.41 kg

DRUGS (9)
  1. ENBREL [Suspect]
     Indication: PSORIASIS
     Route: 064
     Dates: start: 20080428, end: 20090104
  2. VITAMIN TAB [Concomitant]
     Route: 064
  3. ALCOHOL [Concomitant]
     Route: 064
     Dates: start: 20080428, end: 20090103
  4. CAFFEINE [Concomitant]
     Route: 064
     Dates: start: 20080730, end: 20090104
  5. TUMS [Concomitant]
     Route: 064
     Dates: start: 20080909, end: 20080923
  6. RHINOCORT [Concomitant]
     Route: 064
     Dates: start: 20080428, end: 20090104
  7. COLACE [Concomitant]
     Route: 064
     Dates: start: 20080916, end: 20080922
  8. MAGNESIUM SULFATE [Concomitant]
     Route: 064
     Dates: start: 20081001, end: 20090104
  9. MILK OF MAGNESIA [Concomitant]
     Route: 064
     Dates: start: 20080428, end: 20080923

REACTIONS (1)
  - JAUNDICE NEONATAL [None]
